FAERS Safety Report 23396921 (Version 1)
Quarter: 2024Q1

REPORT INFORMATION
  Report Type: Report from Study
  Country: CH (occurrence: CH)
  Receive Date: 20240112
  Receipt Date: 20240112
  Transmission Date: 20240410
  Serious: Yes (Hospitalization, Other)
  Sender: FDA-Public Use
  Company Number: CH-PFIZER INC-PV202400004420

PATIENT
  Age: 45 Year
  Sex: Male

DRUGS (4)
  1. ELRANATAMAB [Suspect]
     Active Substance: ELRANATAMAB
     Dosage: CYCLE 1 (3 STEP-UP DOSES): INPATIENT DURING 8 DAYS
     Route: 058
  2. ELRANATAMAB [Suspect]
     Active Substance: ELRANATAMAB
     Dosage: CYCLES 2-6 (FIXED DOSE): OUTPATIENT, WEEKLY
     Route: 058
  3. VALACYCLOVIR [Concomitant]
     Active Substance: VALACYCLOVIR HYDROCHLORIDE
     Indication: Infection prophylaxis
  4. BACTRIM [Concomitant]
     Active Substance: SULFAMETHOXAZOLE\TRIMETHOPRIM
     Indication: Infection prophylaxis

REACTIONS (3)
  - Cytokine release syndrome [Recovering/Resolving]
  - Agranulocytosis [Recovering/Resolving]
  - Hypogammaglobulinaemia [Unknown]
